FAERS Safety Report 9987482 (Version 1)
Quarter: 2014Q1

REPORT INFORMATION
  Report Type: Spontaneous
  Country: US (occurrence: US)
  Receive Date: 20140307
  Receipt Date: 20140307
  Transmission Date: 20141002
  Serious: No
  Sender: FDA-Public Use
  Company Number: US-AMGEN-USASP2014011307

PATIENT
  Age: 53 Year
  Sex: Male

DRUGS (2)
  1. ENBREL [Suspect]
     Indication: RHEUMATOID ARTHRITIS
     Dosage: 50 MG, ONCE EVERY 7 TO 10 DAYS
     Route: 065
     Dates: start: 20021201
  2. ENBREL [Suspect]

REACTIONS (1)
  - Inappropriate schedule of drug administration [Not Recovered/Not Resolved]
